FAERS Safety Report 12123188 (Version 1)
Quarter: 2016Q1

REPORT INFORMATION
  Report Type: Report from Study
  Country: US (occurrence: US)
  Receive Date: 20160227
  Receipt Date: 20160227
  Transmission Date: 20160526
  Serious: Yes (Other)
  Sender: FDA-Public Use
  Company Number: US-BRISTOL-MYERS SQUIBB COMPANY-BMS-2016-013077

PATIENT
  Sex: Female
  Weight: 36 kg

DRUGS (1)
  1. NIVOLUMAB [Suspect]
     Active Substance: NIVOLUMAB
     Indication: RENAL CANCER
     Dosage: UNK
     Route: 042
     Dates: start: 20151207, end: 20160111

REACTIONS (11)
  - Ascites [Unknown]
  - Feeling abnormal [Unknown]
  - Peripheral swelling [Unknown]
  - Constipation [Unknown]
  - Gait disturbance [Unknown]
  - Somnolence [Unknown]
  - Weight decreased [Unknown]
  - Fatigue [Unknown]
  - Asthenia [Unknown]
  - Dysphonia [Unknown]
  - Dyspnoea [Unknown]
